FAERS Safety Report 5741492-5 (Version None)
Quarter: 2008Q2

REPORT INFORMATION
  Report Type: 
  Country: None (occurrence: None)
  Receive Date: 20080519
  Receipt Date: 20070419
  Transmission Date: 20081010
  Serious: Yes (Life-Threatening, Hospitalization)
  Sender: FDA-Public Use
  Company Number: US-BAYER-US-2007-009186

PATIENT
  Age: 80 Year
  Sex: Female

DRUGS (12)
  1. ULTRAVIST 300 [Suspect]
     Indication: COMPUTERISED TOMOGRAM ABDOMEN
     Dosage: UNIT DOSE: 100 ML
     Route: 042
     Dates: start: 20070223, end: 20070223
  2. NORVASC [Concomitant]
     Dosage: UNIT DOSE: 5 MG
  3. LOPRESSOR [Concomitant]
     Dosage: UNIT DOSE: 50 MG
  4. LIPITOR [Concomitant]
     Dosage: UNIT DOSE: 10 MG
  5. NAMENDA [Concomitant]
     Dosage: UNIT DOSE: 10 MG
  6. IMDUR [Concomitant]
     Dosage: UNIT DOSE: 30 MG
  7. AMARYL [Concomitant]
     Dosage: UNIT DOSE: 4 MG
  8. GLUCOPHAGE [Concomitant]
     Dosage: UNIT DOSE: 500 MG
  9. ASPIRIN [Concomitant]
     Dosage: UNIT DOSE: 325 MG
  10. VITAMIN CAP [Concomitant]
  11. NEURONTIN [Concomitant]
  12. ARICEPT [Concomitant]

REACTIONS (13)
  - ANAPHYLACTIC REACTION [None]
  - ATELECTASIS [None]
  - BLOOD ALBUMIN DECREASED [None]
  - ENDOTRACHEAL INTUBATION COMPLICATION [None]
  - HYPERHIDROSIS [None]
  - HYPERTENSION [None]
  - PHARYNGEAL OEDEMA [None]
  - RESPIRATORY ARREST [None]
  - RESPIRATORY RATE INCREASED [None]
  - SUPRAVENTRICULAR EXTRASYSTOLES [None]
  - SWOLLEN TONGUE [None]
  - TACHYCARDIA [None]
  - VENTRICULAR EXTRASYSTOLES [None]
